FAERS Safety Report 25676796 (Version 3)
Quarter: 2025Q3

REPORT INFORMATION
  Report Type: Spontaneous
  Country: GB (occurrence: GB)
  Receive Date: 20250813
  Receipt Date: 20250902
  Transmission Date: 20251021
  Serious: Yes (Hospitalization, Other)
  Sender: MYLAN
  Company Number: GB-MYLANLABS-2025M1062867

PATIENT
  Sex: Male

DRUGS (4)
  1. CLOZAPINE [Suspect]
     Active Substance: CLOZAPINE
     Indication: Schizophrenia
  2. CLOZAPINE [Suspect]
     Active Substance: CLOZAPINE
     Route: 048
  3. CLOZAPINE [Suspect]
     Active Substance: CLOZAPINE
     Route: 048
  4. CLOZAPINE [Suspect]
     Active Substance: CLOZAPINE

REACTIONS (12)
  - Polydipsia psychogenic [Unknown]
  - Psychotic disorder [Unknown]
  - Hyponatraemia [Unknown]
  - Neutropenia [Unknown]
  - Neutrophil count decreased [Recovered/Resolved]
  - White blood cell count decreased [Recovered/Resolved]
  - Eosinophil count decreased [Not Recovered/Not Resolved]
  - Hypernatraemia [Unknown]
  - Blood sodium decreased [Unknown]
  - Haemodilution [Unknown]
  - Blood folate decreased [Unknown]
  - Vitamin B12 decreased [Unknown]

NARRATIVE: CASE EVENT DATE: 20250623
